FAERS Safety Report 6286468-7 (Version None)
Quarter: 2009Q3

REPORT INFORMATION
  Report Type: 
  Country: None (occurrence: None)
  Receive Date: 20090728
  Receipt Date: 20090720
  Transmission Date: 20100115
  Serious: Yes (Hospitalization)
  Sender: FDA-Public Use
  Company Number: B0584803A

PATIENT
  Sex: Female

DRUGS (3)
  1. LAMICTAL [Suspect]
     Indication: EPILEPSY
     Dosage: 200MG PER DAY
     Route: 048
     Dates: start: 20090306
  2. ALCOHOLIC BEVERAGE [Suspect]
     Dates: start: 20090322
  3. DEPAKENE [Concomitant]
     Indication: EPILEPSY
     Route: 065

REACTIONS (5)
  - ACCIDENTAL OVERDOSE [None]
  - BALANCE DISORDER [None]
  - DRUG DISPENSING ERROR [None]
  - FEELING DRUNK [None]
  - NYSTAGMUS [None]
